FAERS Safety Report 11928576 (Version 1)
Quarter: 2016Q1

REPORT INFORMATION
  Report Type: Spontaneous
  Country: TW (occurrence: TW)
  Receive Date: 20160119
  Receipt Date: 20160119
  Transmission Date: 20160526
  Serious: Yes (Other)
  Sender: FDA-Public Use
  Company Number: TW-HQ SPECIALTY-TW-2016INT000012

PATIENT
  Age: 42 Year

DRUGS (3)
  1. CISPLATIN. [Suspect]
     Active Substance: CISPLATIN
     Indication: NASOPHARYNGEAL CANCER
     Dosage: UNK
  2. MITOMYCIN C [Concomitant]
     Active Substance: MITOMYCIN
     Indication: NASOPHARYNGEAL CANCER
     Dosage: UNK
  3. TEGAFUR W/URACIL [Concomitant]
     Active Substance: TEGAFUR\URACIL
     Indication: NASOPHARYNGEAL CANCER
     Dosage: UNK

REACTIONS (3)
  - Pneumonia aspiration [None]
  - Drug hypersensitivity [Unknown]
  - Septic shock [None]
